FAERS Safety Report 12037257 (Version 2)
Quarter: 2016Q1

REPORT INFORMATION
  Report Type: Spontaneous
  Country: US (occurrence: US)
  Receive Date: 20160208
  Receipt Date: 20160224
  Transmission Date: 20160526
  Serious: Yes (Hospitalization)
  Sender: FDA-Public Use
  Company Number: US-ROCHE-1647793

PATIENT
  Sex: Male

DRUGS (7)
  1. PERCOCET [Concomitant]
     Active Substance: ACETAMINOPHEN\OXYCODONE HYDROCHLORIDE
  2. FLOVENT [Concomitant]
     Active Substance: FLUTICASONE PROPIONATE
  3. PROVENTIL [Concomitant]
     Active Substance: ALBUTEROL
  4. ESBRIET [Suspect]
     Active Substance: PIRFENIDONE
     Indication: PULMONARY FIBROSIS
     Route: 048
     Dates: start: 20150901
  5. ALBUTEROL. [Concomitant]
     Active Substance: ALBUTEROL
  6. ESBRIET [Suspect]
     Active Substance: PIRFENIDONE
     Indication: IDIOPATHIC PULMONARY FIBROSIS
     Route: 048
     Dates: start: 20150912
  7. LEVOTHYROXINE. [Concomitant]
     Active Substance: LEVOTHYROXINE

REACTIONS (10)
  - Abdominal pain upper [Unknown]
  - Hepatomegaly [Unknown]
  - Weight increased [Unknown]
  - Pruritus [Unknown]
  - Skin discolouration [Unknown]
  - Rash erythematous [Unknown]
  - Rash [Unknown]
  - Amnesia [Unknown]
  - Joint swelling [Unknown]
  - Pneumonia [Unknown]
